FAERS Safety Report 14547286 (Version 2)
Quarter: 2018Q1

REPORT INFORMATION
  Report Type: Spontaneous
  Country: US (occurrence: US)
  Receive Date: 20180219
  Receipt Date: 20180316
  Transmission Date: 20180509
  Serious: Yes (Other)
  Sender: FDA-Public Use
  Company Number: US-LEXICON PHARMACEUTICALS, INC-18-1606-00142

PATIENT
  Age: 64 Year
  Sex: Male

DRUGS (2)
  1. TELOTRISTAT ETHYL [Suspect]
     Active Substance: TELOTRISTAT ETHYL
     Indication: CARCINOID TUMOUR
     Route: 048
     Dates: start: 20180123
  2. SANDOSTATIN [Concomitant]
     Active Substance: OCTREOTIDE ACETATE

REACTIONS (1)
  - Knee operation [Unknown]

NARRATIVE: CASE EVENT DATE: 20180202
